FAERS Safety Report 5064570-5 (Version None)
Quarter: 2006Q3

REPORT INFORMATION
  Report Type: 
  Country: None (occurrence: None)
  Receive Date: 20060726
  Receipt Date: 20060712
  Transmission Date: 20061208
  Serious: Yes (Other)
  Sender: FDA-Public Use
  Company Number: 2006087511

PATIENT
  Age: 92 Year
  Sex: Female
  Weight: 56.6996 kg

DRUGS (8)
  1. GEODON [Suspect]
     Indication: DEMENTIA
     Dosage: 80  MG (40 MG, 2 IN 1 D), ORAL
     Route: 048
     Dates: start: 20060707
  2. GALANTAMINE (GALANTAMINE) [Suspect]
     Indication: DEMENTIA
     Dates: start: 20060707
  3. ZOLOFT [Concomitant]
  4. ALTACE [Concomitant]
  5. DILTIAZEM [Concomitant]
  6. METOPROLOL TARTRATE [Concomitant]
  7. DIGOXIN [Concomitant]
  8. SEROQUEL [Concomitant]

REACTIONS (11)
  - ABDOMINAL PAIN UPPER [None]
  - AGITATION [None]
  - ANOREXIA [None]
  - ASTHENIA [None]
  - DIZZINESS [None]
  - HEARING IMPAIRED [None]
  - INCOHERENT [None]
  - MOBILITY DECREASED [None]
  - MUSCULAR WEAKNESS [None]
  - PARANOIA [None]
  - TINNITUS [None]
